FAERS Safety Report 5748076-3 (Version None)
Quarter: 2008Q2

REPORT INFORMATION
  Report Type: 
  Country: None (occurrence: None)
  Receive Date: 20080523
  Receipt Date: 20080512
  Transmission Date: 20081010
  Serious: Yes (Hospitalization)
  Sender: FDA-Public Use
  Company Number: JP-ROCHE-564547

PATIENT
  Age: 93 Year
  Sex: Male

DRUGS (6)
  1. ROCEPHIN [Suspect]
     Indication: PNEUMONIA
     Dosage: ROUTE: INTRAVENOUS (NOT OTHERWISE SPECIFIED)
     Route: 042
     Dates: start: 20080422, end: 20080430
  2. ZITHROMAX [Concomitant]
     Dosage: FORM: ORAL FORMULATION (NOT OTHERWISE SPECIFIED)
     Route: 048
     Dates: start: 20080422, end: 20080424
  3. MUCODYNE [Concomitant]
     Dosage: FORM: ORAL FORMULATION (NOT OTHERWISE SPECIFIED)
     Route: 048
  4. MUCOSTA [Concomitant]
     Dosage: FORM: ORAL FORMULATION (NOT OTHERWISE SPECIFIED)
     Route: 048
  5. LAC B-R [Concomitant]
     Dosage: DRUG: LACB R(ANTIBIOTICS-RESISTANT LACTIC ACID BACTERIAE)
     Route: 048
  6. MAGMITT [Concomitant]
     Route: 048

REACTIONS (1)
  - CHOLECYSTITIS [None]
